FAERS Safety Report 16235794 (Version 3)
Quarter: 2019Q4

REPORT INFORMATION
  Report Type: Spontaneous
  Country: CA (occurrence: CA)
  Receive Date: 20190424
  Receipt Date: 20191204
  Transmission Date: 20200122
  Serious: Yes (Other)
  Sender: FDA-Public Use
  Company Number: PHHY2019CA089262

PATIENT
  Age: 68 Year
  Sex: Female

DRUGS (1)
  1. PASIREOTIDE. [Suspect]
     Active Substance: PASIREOTIDE
     Indication: PITUITARY-DEPENDENT CUSHING^S SYNDROME
     Route: 065

REACTIONS (3)
  - Diabetes mellitus inadequate control [Unknown]
  - Hyperglycaemia [Unknown]
  - Hepatic enzyme increased [Unknown]
